FAERS Safety Report 8606081-3 (Version None)
Quarter: 2012Q3

REPORT INFORMATION
  Report Type: 
  Country: None (occurrence: None)
  Receive Date: 20120820
  Receipt Date: 20120815
  Transmission Date: 20120928
  Serious: Yes (Life-Threatening)
  Sender: FDA-Public Use
  Company Number: PHEH2012US016032

PATIENT
  Sex: Female

DRUGS (2)
  1. GLEEVEC [Suspect]
     Dosage: 400 MG, QD
     Route: 048
  2. DEPAKOTE [Interacting]

REACTIONS (4)
  - AGITATION [None]
  - PANIC ATTACK [None]
  - DRUG INTERACTION [None]
  - SUICIDAL IDEATION [None]
